FAERS Safety Report 14161055 (Version 5)
Quarter: 2018Q1

REPORT INFORMATION
  Report Type: Report from Study
  Country: US (occurrence: US)
  Receive Date: 20171106
  Receipt Date: 20180214
  Transmission Date: 20180508
  Serious: Yes (Hospitalization, Other)
  Sender: FDA-Public Use
  Company Number: US-PFIZER INC-2017426495

PATIENT
  Age: 33 Year
  Sex: Male

DRUGS (2)
  1. SUTENT [Suspect]
     Active Substance: SUNITINIB MALATE
     Indication: PANCREATIC NEUROENDOCRINE TUMOUR
  2. SUTENT [Suspect]
     Active Substance: SUNITINIB MALATE
     Indication: RENAL CELL CARCINOMA
     Dosage: 50 MG, DAILY
     Route: 048
     Dates: start: 20170920, end: 20180115

REACTIONS (14)
  - Blister [Unknown]
  - Abdominal pain [Recovered/Resolved]
  - Hepatic enzyme increased [Unknown]
  - Gastritis [Unknown]
  - Gastric ulcer [Recovering/Resolving]
  - Erythema [Unknown]
  - Weight decreased [Unknown]
  - Gallbladder disorder [Not Recovered/Not Resolved]
  - Rash macular [Unknown]
  - Speech disorder [Unknown]
  - Diarrhoea [Unknown]
  - Fatigue [Unknown]
  - Thyroid disorder [Not Recovered/Not Resolved]
  - Confusional state [Unknown]

NARRATIVE: CASE EVENT DATE: 2017
